FAERS Safety Report 6718148-5 (Version None)
Quarter: 2010Q2

REPORT INFORMATION
  Report Type: 
  Country: None (occurrence: None)
  Receive Date: 20100510
  Receipt Date: 20100503
  Transmission Date: 20101027
  Serious: Yes (Other)
  Sender: FDA-Public Use
  Company Number: B0651801A

PATIENT

DRUGS (2)
  1. ZOFRAN [Suspect]
     Indication: DRUG USE FOR UNKNOWN INDICATION
     Dates: start: 20100419, end: 20100419
  2. PRIMPERAN TAB [Suspect]
     Indication: DRUG USE FOR UNKNOWN INDICATION
     Dates: start: 20100419, end: 20100419

REACTIONS (3)
  - DRUG EXPOSURE DURING PREGNANCY [None]
  - HYPERTONIA NEONATAL [None]
  - OFF LABEL USE [None]
